FAERS Safety Report 16393934 (Version 2)
Quarter: 2019Q2

REPORT INFORMATION
  Report Type: Spontaneous
  Country: US (occurrence: US)
  Receive Date: 20190605
  Receipt Date: 20190619
  Transmission Date: 20190711
  Serious: No
  Sender: FDA-Public Use
  Company Number: US-ALLERGAN-1842867US

PATIENT
  Age: 22 Year
  Sex: Female

DRUGS (3)
  1. TAYTULLA [Suspect]
     Active Substance: ETHINYL ESTRADIOL\NORETHINDRONE ACETATE
     Indication: POLYMENORRHOEA
     Dosage: UNK
     Route: 048
     Dates: start: 201801, end: 201806
  2. TAYTULLA [Suspect]
     Active Substance: ETHINYL ESTRADIOL\NORETHINDRONE ACETATE
     Indication: MUSCLE SPASMS
  3. ESCITALOPRAM [Concomitant]
     Active Substance: ESCITALOPRAM OXALATE
     Indication: SLEEP DISORDER
     Dosage: 20 MG, QOD
     Route: 048

REACTIONS (2)
  - Off label use [Unknown]
  - Acne [Recovering/Resolving]

NARRATIVE: CASE EVENT DATE: 2018
